FAERS Safety Report 7003062-0 (Version None)
Quarter: 2010Q3

REPORT INFORMATION
  Report Type: 
  Country: None (occurrence: None)
  Receive Date: 20100920
  Receipt Date: 20090928
  Transmission Date: 20110219
  Serious: No
  Sender: FDA-Public Use
  Company Number: US-ASTRAZENECA-2009SE16605

PATIENT
  Age: 15 Year
  Sex: Female
  Weight: 63.5 kg

DRUGS (5)
  1. SEROQUEL XR [Suspect]
     Route: 048
     Dates: start: 20090601
  2. SEROQUEL XR [Suspect]
     Route: 048
     Dates: start: 20090803
  3. SEROQUEL XR [Suspect]
     Route: 048
  4. TENNEX [Concomitant]
  5. DEPROVERA [Concomitant]

REACTIONS (3)
  - ANGER [None]
  - ATTENTION-SEEKING BEHAVIOUR [None]
  - IRRITABILITY [None]
